FAERS Safety Report 11808720 (Version 1)
Quarter: 2015Q4

REPORT INFORMATION
  Report Type: Spontaneous
  Country: US (occurrence: US)
  Receive Date: 20151207
  Receipt Date: 20151207
  Transmission Date: 20160305
  Serious: Yes (Life-Threatening, Hospitalization)
  Sender: FDA-Public Use
  Company Number: US-ROCHE-1469250

PATIENT
  Sex: Female

DRUGS (2)
  1. PREDNISONE. [Concomitant]
     Active Substance: PREDNISONE
  2. ACTEMRA [Suspect]
     Active Substance: TOCILIZUMAB
     Indication: RHEUMATOID ARTHRITIS
     Dosage: ON 17/SEP/2013, 16/OCT/2013, 13/NOV/2013 AND 12/DEC/2012, SHE RECEIVED THE SUBSEQUENT DOSES OF TOCI
     Route: 042
     Dates: start: 20130502

REACTIONS (1)
  - Gastrointestinal perforation [Recovered/Resolved with Sequelae]

NARRATIVE: CASE EVENT DATE: 201401
